FAERS Safety Report 6471701-9 (Version None)
Quarter: 2009Q4

REPORT INFORMATION
  Report Type: 
  Country: None (occurrence: None)
  Receive Date: 20091203
  Receipt Date: 20080428
  Transmission Date: 20100525
  Serious: Yes (Death, Hospitalization)
  Sender: FDA-Public Use
  Company Number: FR-ELI_LILLY_AND_COMPANY-FR200803006665

PATIENT
  Age: 76 Year
  Sex: Female

DRUGS (8)
  1. FORTEO [Suspect]
     Indication: OSTEOPOROSIS
     Dosage: 20 UG, DAILY (1/D)
     Route: 058
     Dates: start: 20070112
  2. LEVOTHYROXINE SODIUM [Concomitant]
  3. RAMIPRIL [Concomitant]
  4. CORDARONE [Concomitant]
  5. LANSOPRAZOLE [Concomitant]
  6. PREVISCAN [Concomitant]
  7. TOPALGIC [Concomitant]
  8. ZOLOFT [Concomitant]

REACTIONS (3)
  - ABDOMINAL PAIN [None]
  - GASTROINTESTINAL NECROSIS [None]
  - VOLVULUS OF SMALL BOWEL [None]
